FAERS Safety Report 20724023 (Version 1)
Quarter: 2022Q2

REPORT INFORMATION
  Report Type: Report from Study
  Country: IT (occurrence: IT)
  Receive Date: 20220419
  Receipt Date: 20220419
  Transmission Date: 20220721
  Serious: Yes (Hospitalization, Other)
  Sender: FDA-Public Use
  Company Number: IT-ABBVIE-22P-083-4293773-00

PATIENT
  Age: 70 Year
  Sex: Male

DRUGS (4)
  1. VENETOCLAX [Suspect]
     Active Substance: VENETOCLAX
     Indication: Acute myeloid leukaemia
     Dosage: 200 MG FOR 1 DAY (RAMP UP) THEN 400 MG/DIE
     Route: 048
     Dates: start: 20220110, end: 20220130
  2. VENETOCLAX [Suspect]
     Active Substance: VENETOCLAX
     Indication: Myeloproliferative neoplasm
  3. DECITABINE [Concomitant]
     Active Substance: DECITABINE
     Indication: Acute myeloid leukaemia
     Route: 042
     Dates: start: 20220110, end: 20220115
  4. DECITABINE [Concomitant]
     Active Substance: DECITABINE
     Indication: Myeloproliferative neoplasm

REACTIONS (6)
  - Febrile neutropenia [Recovered/Resolved]
  - Pneumocystis test positive [Unknown]
  - Aspergillus test positive [Unknown]
  - Stomatitis [Unknown]
  - Anaemia [Unknown]
  - Bronchopulmonary aspergillosis [Not Recovered/Not Resolved]

NARRATIVE: CASE EVENT DATE: 20220205
